FAERS Safety Report 12340912 (Version 1)
Quarter: 2016Q2

REPORT INFORMATION
  Report Type: Spontaneous
  Country: US (occurrence: US)
  Receive Date: 20160506
  Receipt Date: 20160506
  Transmission Date: 20160815
  Serious: No
  Sender: FDA-Public Use
  Company Number: US-PFIZER INC-2016227688

PATIENT
  Age: 62 Year
  Sex: Female

DRUGS (3)
  1. RAPAMUNE [Suspect]
     Active Substance: SIROLIMUS
     Indication: LIVER TRANSPLANT
     Dosage: 1 MG, 3X/DAY ORALLY
     Route: 048
     Dates: start: 2010
  2. VIREAD [Concomitant]
     Active Substance: TENOFOVIR DISOPROXIL FUMARATE
     Dosage: 300 MG, DAILY; 1 DAILY
  3. CELLCEPT [Concomitant]
     Active Substance: MYCOPHENOLATE MOFETIL\MYCOPHENOLATE MOFETIL HYDROCHLORIDE
     Indication: TRANSPLANT REJECTION
     Dosage: 2 DF, 2X/DAY; 250MG, TWO TWICE A DAY

REACTIONS (3)
  - Product use issue [Unknown]
  - Liver disorder [Unknown]
  - Hepatic pain [Unknown]
